FAERS Safety Report 23028582 (Version 4)
Quarter: 2023Q4

REPORT INFORMATION
  Report Type: Spontaneous
  Country: US (occurrence: US)
  Receive Date: 20231004
  Receipt Date: 20231120
  Transmission Date: 20240110
  Serious: Yes (Other)
  Sender: FDA-Public Use
  Company Number: US-PFIZER INC-202300316002

PATIENT
  Age: 71 Year
  Sex: Female

DRUGS (3)
  1. PAXLOVID [Suspect]
     Active Substance: NIRMATRELVIR\RITONAVIR
     Indication: COVID-19 treatment
     Dosage: UNK
  2. PAXLOVID [Suspect]
     Active Substance: NIRMATRELVIR\RITONAVIR
     Dosage: UNK
  3. NYSTATIN [Concomitant]
     Active Substance: NYSTATIN
     Indication: Rash
     Dosage: UNK

REACTIONS (7)
  - Candida infection [Recovering/Resolving]
  - Swollen tongue [Unknown]
  - Lip disorder [Unknown]
  - Body height decreased [Unknown]
  - Dysgeusia [Recovering/Resolving]
  - Vision blurred [Unknown]
  - Glossodynia [Unknown]

NARRATIVE: CASE EVENT DATE: 20231002
